FAERS Safety Report 8309183-4 (Version None)
Quarter: 2012Q2

REPORT INFORMATION
  Report Type: 
  Country: None (occurrence: None)
  Receive Date: 20120424
  Receipt Date: 20120330
  Transmission Date: 20120825
  Serious: Yes (Hospitalization, Other)
  Sender: FDA-Public Use
  Company Number: PH-BAXTER-2012BAX002075

PATIENT
  Sex: Male

DRUGS (5)
  1. FOLIC ACID [Concomitant]
  2. DIANEAL PD-2 W/ DEXTROSE 4.25% [Suspect]
     Indication: PERITONEAL DIALYSIS
     Route: 033
     Dates: end: 20120402
  3. FERROUS SULFATE TAB [Concomitant]
     Route: 048
  4. EPOETIN [Concomitant]
     Route: 058
  5. NAHCO3 [Concomitant]

REACTIONS (3)
  - ASCITES [None]
  - GASTROINTESTINAL DISORDER [None]
  - DYSPNOEA [None]
